FAERS Safety Report 8225410-6 (Version None)
Quarter: 2012Q1

REPORT INFORMATION
  Report Type: 
  Country: None (occurrence: None)
  Receive Date: 20120307
  Receipt Date: 20101221
  Transmission Date: 20120608
  Serious: No
  Sender: FDA-Public Use
  Company Number: PHHY2010US83486

PATIENT
  Age: 80 Year
  Sex: Male

DRUGS (1)
  1. AFINITOR [Suspect]
     Indication: RENAL CANCER
     Dosage: 10 MG, ORAL
     Route: 048
     Dates: start: 20101001, end: 20101101

REACTIONS (3)
  - MIGRAINE [None]
  - DYSPNOEA [None]
  - EPISTAXIS [None]
